FAERS Safety Report 4824477-2 (Version None)
Quarter: 2005Q4

REPORT INFORMATION
  Report Type: 
  Country: None (occurrence: None)
  Receive Date: 20051110
  Receipt Date: 20051024
  Transmission Date: 20060501
  Serious: Yes (Other)
  Sender: FDA-Public Use
  Company Number: JP-SP-2005-02181

PATIENT
  Age: 78 Year
  Sex: Male

DRUGS (5)
  1. IMMUCYST [Suspect]
     Indication: BLADDER CANCER
     Route: 043
     Dates: start: 20050819, end: 20051006
  2. IMMUCYST [Suspect]
     Route: 043
     Dates: start: 20050819, end: 20051006
  3. AMLODIPINE BESYLATE [Concomitant]
     Dates: start: 20040401
  4. TAMSULOSIN HYDROCHLORIDE [Concomitant]
  5. CERNITIN POLLEN EXTRACT [Concomitant]

REACTIONS (3)
  - DYSURIA [None]
  - POLLAKIURIA [None]
  - URINARY TRACT INFECTION [None]
